FAERS Safety Report 11350507 (Version 1)
Quarter: 2015Q3

REPORT INFORMATION
  Report Type: Spontaneous
  Country: US (occurrence: None)
  Receive Date: 20150805
  Receipt Date: 20150805
  Transmission Date: 20151125
  Serious: No
  Sender: FDA-Public Use
  Company Number: None

PATIENT
  Age: 88 Year
  Sex: Female

DRUGS (17)
  1. AMIODARONE [Concomitant]
     Active Substance: AMIODARONE
  2. ACETAMINOPHEN. [Concomitant]
     Active Substance: ACETAMINOPHEN
  3. WARFARIN [Concomitant]
     Active Substance: WARFARIN
  4. HEPARIN [Concomitant]
     Active Substance: HEPARIN SODIUM
  5. LEVOTHYROXINE. [Concomitant]
     Active Substance: LEVOTHYROXINE
  6. PHENYLEPHRINE [Concomitant]
     Active Substance: PHENYLEPHRINE\PHENYLEPHRINE HYDROCHLORIDE
  7. INSULIN ASPART [Suspect]
     Active Substance: INSULIN ASPART
     Indication: HYPERGLYCAEMIA
     Route: 058
     Dates: start: 20141206, end: 20141207
  8. DEXTROSE 5%/0.45% NSS [Concomitant]
  9. HALOPERIDOL. [Concomitant]
     Active Substance: HALOPERIDOL
  10. ALBUTEROL. [Concomitant]
     Active Substance: ALBUTEROL
  11. FUROSEMDIE [Concomitant]
  12. MAGNESIUM OXIDE. [Concomitant]
     Active Substance: MAGNESIUM OXIDE
  13. PREDNISONE. [Concomitant]
     Active Substance: PREDNISONE
  14. ASA [Concomitant]
     Active Substance: ASPIRIN
  15. METOPROLOL TARTRATE. [Concomitant]
     Active Substance: METOPROLOL TARTRATE
  16. VANCOMYCIN [Concomitant]
     Active Substance: VANCOMYCIN
  17. OXYCODONE [Concomitant]
     Active Substance: OXYCODONE

REACTIONS (1)
  - Blood glucose decreased [None]

NARRATIVE: CASE EVENT DATE: 20141208
